FAERS Safety Report 8162061-6 (Version None)
Quarter: 2012Q1

REPORT INFORMATION
  Report Type: 
  Country: None (occurrence: None)
  Receive Date: 20120224
  Receipt Date: 20110708
  Transmission Date: 20120608
  Serious: No
  Sender: FDA-Public Use
  Company Number: US-BRISTOL-MYERS SQUIBB COMPANY-15834047

PATIENT
  Age: 73 Year
  Sex: Female

DRUGS (2)
  1. METFORMIN HCL [Suspect]
     Route: 065
  2. LANTUS [Suspect]
     Indication: TYPE 2 DIABETES MELLITUS
     Dosage: 1DF=10UNITS ALSO PARENTRAL,INJ SOLN 100IU/MILLILITRE
     Route: 058
     Dates: start: 20110501, end: 20110518

REACTIONS (1)
  - BLOOD GLUCOSE INCREASED [None]
